FAERS Safety Report 21132853 (Version 1)
Quarter: 2022Q3

REPORT INFORMATION
  Report Type: Spontaneous
  Country: US (occurrence: US)
  Receive Date: 20220726
  Receipt Date: 20220726
  Transmission Date: 20221027
  Serious: No
  Sender: FDA-Public Use
  Company Number: US-PFIZER INC-202201001902

PATIENT
  Age: 81 Year
  Sex: Female

DRUGS (6)
  1. INLYTA [Suspect]
     Active Substance: AXITINIB
     Dosage: 5 MG, 2X/DAY
     Dates: start: 20220701
  2. ATORVASTATIN [Concomitant]
     Active Substance: ATORVASTATIN
     Dosage: UNK
  3. ELIQUIS [Concomitant]
     Active Substance: APIXABAN
     Dosage: UNK
  4. HYDROCHLOROTHIAZIDE [Concomitant]
     Active Substance: HYDROCHLOROTHIAZIDE
     Dosage: UNK
  5. PAXLOVID [Concomitant]
     Active Substance: NIRMATRELVIR\RITONAVIR
     Dosage: UNK
  6. PREGABALIN [Concomitant]
     Active Substance: PREGABALIN
     Dosage: UNK

REACTIONS (2)
  - Diarrhoea [Not Recovered/Not Resolved]
  - Blood pressure decreased [Not Recovered/Not Resolved]

NARRATIVE: CASE EVENT DATE: 20220718
